FAERS Safety Report 4377417-7 (Version None)
Quarter: 2004Q2

REPORT INFORMATION
  Report Type: 
  Country: None (occurrence: None)
  Receive Date: 20040609
  Receipt Date: 20040426
  Transmission Date: 20050107
  Serious: No
  Sender: FDA-Public Use
  Company Number: 2004211121US

PATIENT
  Age: 68 Year
  Sex: Male

DRUGS (1)
  1. BEXTRA [Suspect]
     Indication: MUSCULOSKELETAL DISORDER
     Dosage: 20 MG, QD, UNK
     Dates: start: 20040422, end: 20040424

REACTIONS (2)
  - PRURITUS [None]
  - SCLERAL DISCOLOURATION [None]
